FAERS Safety Report 10183953 (Version 1)
Quarter: 2014Q2

REPORT INFORMATION
  Report Type: Spontaneous
  Country: US (occurrence: US)
  Receive Date: 20140520
  Receipt Date: 20140520
  Transmission Date: 20141212
  Serious: Yes (Hospitalization)
  Sender: FDA-Public Use
  Company Number: US-GLAXOSMITHKLINE-A1073167A

PATIENT
  Age: 80 Year
  Sex: Male

DRUGS (17)
  1. ADVAIR [Suspect]
     Indication: ASTHMA
     Route: 065
     Dates: start: 201308, end: 20140220
  2. FLOVENT [Suspect]
     Indication: ASTHMA
     Dosage: 1PUFF TWICE PER DAY
     Route: 055
     Dates: start: 20140220, end: 20140512
  3. TOPROL XL [Concomitant]
  4. PROTONIX [Concomitant]
  5. ZOCOR [Concomitant]
  6. FUROSEMIDE [Concomitant]
  7. WARFARIN [Concomitant]
  8. UNKNOWN [Concomitant]
  9. FLOMAX [Concomitant]
  10. CLOTRIMAZOLE [Concomitant]
  11. POSACONAZOLE [Concomitant]
  12. GABAPENTIN [Concomitant]
  13. HUMALOG [Concomitant]
  14. LEVEMIR [Concomitant]
  15. PRO-AIR [Concomitant]
  16. MULTIVITAMIN [Concomitant]
  17. OMEGA 3 [Concomitant]

REACTIONS (7)
  - Fatigue [Recovering/Resolving]
  - Asthenia [Recovering/Resolving]
  - Dyspnoea [Recovering/Resolving]
  - Chest discomfort [Recovering/Resolving]
  - Decreased appetite [Recovering/Resolving]
  - Dysphonia [Recovering/Resolving]
  - Cardiac monitoring [Unknown]
